FAERS Safety Report 25048660 (Version 2)
Quarter: 2025Q1

REPORT INFORMATION
  Report Type: Spontaneous
  Country: GB (occurrence: GB)
  Receive Date: 20250307
  Receipt Date: 20250326
  Transmission Date: 20250409
  Serious: Yes (Other)
  Sender: ALK-ABELLO
  Company Number: None

PATIENT

DRUGS (5)
  1. GRAZAX [Suspect]
     Active Substance: PHLEUM PRATENSE POLLEN
     Indication: Seasonal allergy
     Dates: start: 20250102, end: 20250111
  2. GRAZAX [Suspect]
     Active Substance: PHLEUM PRATENSE POLLEN
     Dates: start: 20250120, end: 20250216
  3. FEXOFENADINE [Concomitant]
     Active Substance: FEXOFENADINE HYDROCHLORIDE
     Indication: Seasonal allergy
     Dates: start: 20240603
  4. FLUTICASONE FUROATE [Concomitant]
     Active Substance: FLUTICASONE FUROATE
     Indication: Seasonal allergy
     Dates: start: 20240603
  5. OLOPATADINE [Concomitant]
     Active Substance: OLOPATADINE
     Indication: Seasonal allergy
     Dates: start: 20240603

REACTIONS (11)
  - Myalgia [Recovering/Resolving]
  - Lethargy [Recovering/Resolving]
  - Pharyngeal swelling [Recovered/Resolved]
  - Tonsillar hypertrophy [Unknown]
  - Influenza like illness [Unknown]
  - Mouth ulceration [Recovered/Resolved]
  - Mouth swelling [Unknown]
  - Sensation of foreign body [Unknown]
  - Dysphonia [Unknown]
  - Pain [Unknown]
  - Fatigue [Unknown]

NARRATIVE: CASE EVENT DATE: 20250101
